FAERS Safety Report 12558106 (Version 1)
Quarter: 2016Q3

REPORT INFORMATION
  Report Type: Report from Study
  Country: CA (occurrence: CA)
  Receive Date: 20160714
  Receipt Date: 20160714
  Transmission Date: 20161109
  Serious: Yes (Other)
  Sender: FDA-Public Use
  Company Number: CA-ABBVIE-16K-028-1672371-00

PATIENT
  Age: 70 Year
  Sex: Female

DRUGS (2)
  1. HUMIRA [Suspect]
     Active Substance: ADALIMUMAB
     Indication: PSORIATIC ARTHROPATHY
     Route: 058
     Dates: start: 20130528, end: 201601
  2. CEPHALEXIN. [Suspect]
     Active Substance: CEPHALEXIN
     Indication: INFECTION
     Route: 042
     Dates: start: 2016, end: 2016

REACTIONS (9)
  - Secretion discharge [Recovered/Resolved]
  - Wound secretion [Recovered/Resolved]
  - Infection [Recovered/Resolved]
  - Calcinosis [Recovered/Resolved]
  - Hypophagia [Unknown]
  - Malaise [Unknown]
  - Clostridium difficile infection [Unknown]
  - Weight decreased [Unknown]
  - Arthritis [Not Recovered/Not Resolved]

NARRATIVE: CASE EVENT DATE: 201512
